FAERS Safety Report 25627069 (Version 1)
Quarter: 2025Q3

REPORT INFORMATION
  Report Type: Spontaneous
  Country: GB (occurrence: GB)
  Receive Date: 20250731
  Receipt Date: 20250731
  Transmission Date: 20251020
  Serious: Yes (Hospitalization, Other)
  Sender: TEVA
  Company Number: None

PATIENT
  Age: 75 Year
  Sex: Male

DRUGS (20)
  1. DAPAGLIFLOZIN [Suspect]
     Active Substance: DAPAGLIFLOZIN
     Indication: Product used for unknown indication
     Dosage: TEMPORARILY HELD AND THEN RESTARTED ONCE AKI HAD RESOLVED - SUSPENDED, AKI
     Route: 065
  2. PRAVASTATIN [Concomitant]
     Active Substance: PRAVASTATIN
     Indication: Product used for unknown indication
     Dosage: AT NIGHT
  3. Cosopt iMulti [Concomitant]
     Indication: Product used for unknown indication
     Dosage: IN THE LEFT EYE; (DORZOLAMIDE/TIMOLOL) 20 MG / ML / 5 MG / ML EYE DROPS PRESERVATIVE FREE (SANTEN...
  4. LATANOPROST\TIMOLOL [Concomitant]
     Active Substance: LATANOPROST\TIMOLOL
     Indication: Product used for unknown indication
     Dosage: AT NIGHT IN THE RIGHT EYE; LATANOPROST 50 MICROGRAMS / ML / TIMOLOL 5 MG / ML
  5. INDAPAMIDE [Suspect]
     Active Substance: INDAPAMIDE
     Indication: Product used for unknown indication
     Dosage: SUSPENDED, AKI
     Route: 065
     Dates: start: 20250313, end: 20250715
  6. Eyeaze [Concomitant]
     Indication: Product used for unknown indication
     Dosage: USE AS DIRECTED BY HOSPITAL TO BOTH EYES; PRESERVATIVE FREE
  7. Hylo [Concomitant]
     Indication: Product used for unknown indication
     Dosage: 1 CM  NIGHT AS REQUIRED- INDEFINITELY; PRESERVATIVE FREE
  8. FUROSEMIDE [Suspect]
     Active Substance: FUROSEMIDE
     Indication: Product used for unknown indication
     Dosage: IN THE MORNING AND AT LUNCH TIME - SUSPENDED, AKI
     Route: 065
  9. LATANOPROST [Concomitant]
     Active Substance: LATANOPROST
     Indication: Product used for unknown indication
     Dosage: 50 MICROGRAMS / ML EYE DROPS 0.2 ML UNIT DOSE PRESERVATIVE FREE  AT NIGHT IN THE LEFT EYE - LEFT ...
     Dates: start: 20250715
  10. LACTULOSE [Concomitant]
     Active Substance: LACTULOSE
     Indication: Product used for unknown indication
     Dosage: 3.1-3.7 G / 5 ML USES PRN (AS NEEDED)
  11. SIMBRINZA [Concomitant]
     Active Substance: BRIMONIDINE TARTRATE\BRINZOLAMIDE
     Indication: Product used for unknown indication
     Dosage: 10 MG / ML / 2 MG / ML ONE DROP TO BE USED IN THE RIGHT EYE TWICE A DAY
  12. Heparinoid [Concomitant]
     Indication: Product used for unknown indication
  13. EZETIMIBE [Concomitant]
     Active Substance: EZETIMIBE
     Indication: Product used for unknown indication
     Dosage: EACH NIGHT
  14. IRBESARTAN [Suspect]
     Active Substance: IRBESARTAN
     Indication: Product used for unknown indication
     Dosage: SUSPENDED, AKI
     Route: 065
  15. DIBUCAINE [Concomitant]
     Active Substance: DIBUCAINE
     Indication: Product used for unknown indication
     Route: 061
  16. HYDROCORTISONE [Concomitant]
     Active Substance: HYDROCORTISONE
     Indication: Product used for unknown indication
     Route: 061
     Dates: end: 20250715
  17. BECLOMETHASONE DIPROPIONATE [Concomitant]
     Active Substance: BECLOMETHASONE DIPROPIONATE
     Indication: Product used for unknown indication
     Dosage: 200 MICROGRAMS / DOSE INHALER  PUFFS TO BE INHALED
  18. TIMOLOL [Concomitant]
     Active Substance: TIMOLOL
     Indication: Product used for unknown indication
  19. OMEPRAZOLE [Concomitant]
     Active Substance: OMEPRAZOLE
     Indication: Product used for unknown indication
  20. ACETAMINOPHEN [Concomitant]
     Active Substance: ACETAMINOPHEN
     Indication: Product used for unknown indication

REACTIONS (1)
  - Acute kidney injury [Recovered/Resolved]
